FAERS Safety Report 21009103 (Version 3)
Quarter: 2022Q4

REPORT INFORMATION
  Report Type: Report from Study
  Country: US (occurrence: US)
  Receive Date: 20220627
  Receipt Date: 20221115
  Transmission Date: 20230113
  Serious: Yes (Hospitalization, Other)
  Sender: FDA-Public Use
  Company Number: US-BAYER-2022A084035

PATIENT
  Age: 68 Year
  Sex: Female
  Weight: 70.6 kg

DRUGS (6)
  1. COPANLISIB [Suspect]
     Active Substance: COPANLISIB
     Indication: Fallopian tube cancer
     Dosage: 120 MG
     Route: 048
     Dates: start: 20220303
  2. COPANLISIB [Suspect]
     Active Substance: COPANLISIB
     Indication: Metastases to liver
     Dosage: 120 MG
     Route: 048
     Dates: start: 20220331, end: 20220407
  3. COPANLISIB [Suspect]
     Active Substance: COPANLISIB
     Indication: Fallopian tube cancer
     Dosage: 120 MG
     Route: 048
     Dates: start: 20220531
  4. NIVOLUMAB [Suspect]
     Active Substance: NIVOLUMAB
     Indication: Fallopian tube cancer
     Dosage: 480 MG
     Route: 048
     Dates: start: 20220303
  5. NIVOLUMAB [Suspect]
     Active Substance: NIVOLUMAB
     Indication: Metastases to liver
     Dosage: 480 MG
     Route: 048
     Dates: start: 20220331, end: 20220331
  6. NIVOLUMAB [Suspect]
     Active Substance: NIVOLUMAB
     Indication: Fallopian tube cancer
     Dosage: 480 MG
     Route: 048
     Dates: start: 20220531

REACTIONS (3)
  - Alanine aminotransferase increased [Recovering/Resolving]
  - Aspartate aminotransferase increased [Recovering/Resolving]
  - Platelet count decreased [Recovering/Resolving]

NARRATIVE: CASE EVENT DATE: 20220414
